FAERS Safety Report 23463976 (Version 1)
Quarter: 2024Q1

REPORT INFORMATION
  Report Type: Spontaneous
  Country: US (occurrence: US)
  Receive Date: 20240201
  Receipt Date: 20240201
  Transmission Date: 20240409
  Serious: No
  Sender: FDA-Public Use
  Company Number: US-ELI_LILLY_AND_COMPANY-US202401011445

PATIENT
  Age: 58 Year
  Sex: Female

DRUGS (5)
  1. CYMBALTA [Suspect]
     Active Substance: DULOXETINE HYDROCHLORIDE
     Indication: Multiple sclerosis
     Dosage: UNK UNK, UNKNOWN
     Route: 065
  2. OCREVUS [Concomitant]
     Active Substance: OCRELIZUMAB
     Indication: Product used for unknown indication
     Dosage: UNK, UNKNOWN
     Route: 065
  3. GABAPENTIN [Concomitant]
     Active Substance: GABAPENTIN
     Indication: Product used for unknown indication
     Dosage: UNK, UNKNOWN
     Route: 065
  4. LEVOTHYROXINE [Concomitant]
     Active Substance: LEVOTHYROXINE\LEVOTHYROXINE SODIUM
     Indication: Product used for unknown indication
     Dosage: UNK, UNKNOWN
     Route: 065
  5. TRAMADOL [Concomitant]
     Active Substance: TRAMADOL\TRAMADOL HYDROCHLORIDE
     Indication: Product used for unknown indication

REACTIONS (3)
  - Pain [Recovering/Resolving]
  - Off label use [Unknown]
  - Headache [Recovering/Resolving]
